APPROVED DRUG PRODUCT: CEFTRIAXONE
Active Ingredient: CEFTRIAXONE SODIUM
Strength: EQ 250MG BASE/VIAL
Dosage Form/Route: INJECTABLE;INTRAMUSCULAR, INTRAVENOUS
Application: A065245 | Product #001
Applicant: FRESENIUS KABI USA LLC
Approved: Feb 15, 2006 | RLD: No | RS: No | Type: DISCN